FAERS Safety Report 17433474 (Version 1)
Quarter: 2020Q1

REPORT INFORMATION
  Report Type: Spontaneous
  Country: JP (occurrence: JP)
  Receive Date: 20200219
  Receipt Date: 20200219
  Transmission Date: 20200409
  Serious: Yes (Hospitalization)
  Sender: FDA-Public Use
  Company Number: JP-BIOGEN-2017BI00402891

PATIENT
  Age: 62 Year
  Sex: Female
  Weight: 65 kg

DRUGS (10)
  1. MAGMITT [Concomitant]
     Active Substance: MAGNESIUM OXIDE
     Route: 065
  2. ETIZOLAM [Concomitant]
     Active Substance: ETIZOLAM
     Route: 065
  3. AVONEX [Suspect]
     Active Substance: INTERFERON BETA-1A
     Indication: RELAPSING-REMITTING MULTIPLE SCLEROSIS
     Route: 030
     Dates: start: 201611, end: 20170405
  4. AMLODIPINE [Concomitant]
     Active Substance: AMLODIPINE BESYLATE
     Route: 065
  5. MICARDIS [Concomitant]
     Active Substance: TELMISARTAN
     Route: 065
  6. AVONEX [Suspect]
     Active Substance: INTERFERON BETA-1A
  7. FAMOTIDINE. [Concomitant]
     Active Substance: FAMOTIDINE
     Route: 065
  8. AVONEX [Suspect]
     Active Substance: INTERFERON BETA-1A
  9. AVONEX [Suspect]
     Active Substance: INTERFERON BETA-1A
  10. LOXONIN [Concomitant]
     Active Substance: LOXOPROFEN SODIUM
     Route: 065

REACTIONS (2)
  - Multiple sclerosis relapse [Recovered/Resolved]
  - Multiple sclerosis relapse [Recovered/Resolved]

NARRATIVE: CASE EVENT DATE: 201701
